FAERS Safety Report 9391908 (Version 2)
Quarter: 2014Q2

REPORT INFORMATION
  Report Type: Spontaneous
  Country: US (occurrence: None)
  Receive Date: 20130705
  Receipt Date: 20140416
  Transmission Date: 20141212
  Serious: Yes (Other)
  Sender: FDA-Public Use
  Company Number: 2013SA065961

PATIENT
  Age: 75 Year
  Sex: 0

DRUGS (1)
  1. CAPZASIN [Suspect]
     Indication: ARTHRALGIA
     Dates: start: 20130618

REACTIONS (4)
  - Skin exfoliation [None]
  - Skin burning sensation [None]
  - Pruritus [None]
  - Burning sensation [None]
